FAERS Safety Report 9651018 (Version 1)
Quarter: 2013Q4

REPORT INFORMATION
  Report Type: Spontaneous
  Country: ES (occurrence: ES)
  Receive Date: 20131029
  Receipt Date: 20131029
  Transmission Date: 20140711
  Serious: Yes (Hospitalization)
  Sender: FDA-Public Use
  Company Number: PHHY2013ES118818

PATIENT
  Age: 79 Year
  Sex: Male

DRUGS (4)
  1. SANDIMMUN NEORAL [Suspect]
     Indication: RENAL TRANSPLANT
     Dosage: 100 MG, UNK
     Route: 048
     Dates: end: 20120807
  2. HYDROCHLOROTHIAZIDE,VALSARTAN [Interacting]
     Indication: HYPERTENSION
     Dosage: 80 MG, UNK
     Route: 048
     Dates: start: 201207, end: 20120807
  3. ALDACTONE [Interacting]
     Indication: ASCITES
     Dosage: 100 MG, QD
     Route: 048
     Dates: start: 201207, end: 20120807
  4. SEGURIL [Interacting]
     Indication: ASCITES
     Dosage: 40 MG, TID
     Route: 048
     Dates: start: 201207, end: 20120807

REACTIONS (2)
  - Hyperkalaemia [Recovered/Resolved]
  - Renal failure acute [Recovered/Resolved]
